FAERS Safety Report 5477469-7 (Version None)
Quarter: 2007Q4

REPORT INFORMATION
  Report Type: 
  Country: None (occurrence: None)
  Receive Date: 20071001
  Receipt Date: 20070917
  Transmission Date: 20080405
  Serious: Yes (Death, Hospitalization)
  Sender: FDA-Public Use
  Company Number: CERZ-11876

PATIENT
  Age: 12 Year
  Sex: Female

DRUGS (2)
  1. CEREZYME [Suspect]
     Indication: GAUCHER'S DISEASE
     Dosage: 120 U/KG Q2WKS IV
     Route: 042
     Dates: start: 20050301
  2. CEREZYME [Suspect]
     Indication: GAUCHER'S DISEASE
     Dosage: 60 U/KG IV
     Route: 042
     Dates: start: 20040331, end: 20050201

REACTIONS (17)
  - ASCITES [None]
  - BRAIN OEDEMA [None]
  - CONDITION AGGRAVATED [None]
  - CONVULSION [None]
  - GALLBLADDER DISORDER [None]
  - HEPATIC FAILURE [None]
  - HEPATOMEGALY [None]
  - HYPERKINESIA [None]
  - INFLUENZA [None]
  - INTRACRANIAL PRESSURE INCREASED [None]
  - LOSS OF CONSCIOUSNESS [None]
  - NUCLEAR MAGNETIC RESONANCE IMAGING BRAIN ABNORMAL [None]
  - PULMONARY OEDEMA [None]
  - PYREXIA [None]
  - RENAL FAILURE [None]
  - TONIC CLONIC MOVEMENTS [None]
  - TREATMENT FAILURE [None]
